FAERS Safety Report 7626982-2 (Version None)
Quarter: 2011Q3

REPORT INFORMATION
  Report Type: 
  Country: None (occurrence: None)
  Receive Date: 20110714
  Receipt Date: 20110629
  Transmission Date: 20111222
  Serious: Yes (Disabling)
  Sender: FDA-Public Use
  Company Number: 2011MA008360

PATIENT
  Sex: Male

DRUGS (6)
  1. PRAMIPEXOLE DIHYDROCHLORIDE [Suspect]
     Indication: PARKINSON'S DISEASE
     Dosage: 750 MCG; PO
     Route: 048
  2. TRAMADOL HCL [Concomitant]
  3. DIAZEPAM [Concomitant]
  4. RASAGILINE [Concomitant]
  5. CO-CARELDOPA [Concomitant]
  6. FENTANYL [Concomitant]

REACTIONS (2)
  - DELUSION [None]
  - DISINHIBITION [None]
